FAERS Safety Report 5624115-5 (Version None)
Quarter: 2008Q1

REPORT INFORMATION
  Report Type: 
  Country: None (occurrence: None)
  Receive Date: 20080213
  Receipt Date: 20080204
  Transmission Date: 20080703
  Serious: Yes (Other)
  Sender: FDA-Public Use
  Company Number: US-JNJFOC-20080201073

PATIENT
  Sex: Male

DRUGS (6)
  1. REMICADE [Suspect]
     Route: 042
  2. REMICADE [Suspect]
     Indication: COLITIS ULCERATIVE
     Route: 042
  3. ZANTAC [Concomitant]
     Indication: PREMEDICATION
  4. ZYRTEC [Concomitant]
     Indication: PREMEDICATION
  5. PREDNISONE TAB [Concomitant]
     Indication: PREMEDICATION
  6. TYLENOL (CAPLET) [Concomitant]
     Indication: PREMEDICATION

REACTIONS (4)
  - BACK PAIN [None]
  - INFUSION RELATED REACTION [None]
  - PAIN [None]
  - TREMOR [None]
